FAERS Safety Report 10271896 (Version 1)
Quarter: 2014Q3

REPORT INFORMATION
  Report Type: Spontaneous
  Country: IT (occurrence: IT)
  Receive Date: 20140702
  Receipt Date: 20140702
  Transmission Date: 20150326
  Serious: Yes (Other)
  Sender: FDA-Public Use
  Company Number: PHHY2014IT078713

PATIENT
  Sex: Female

DRUGS (3)
  1. DELTACORTENE [Suspect]
     Active Substance: PREDNISONE
     Indication: INTENTIONAL SELF-INJURY
     Dosage: 5 DF, ONCE/SINGLE
     Route: 048
     Dates: start: 20140307, end: 20140307
  2. ALLOPURINOL. [Suspect]
     Active Substance: ALLOPURINOL
     Indication: INTENTIONAL SELF-INJURY
     Dosage: 7 DF, ONCE/SINGLE
     Route: 048
     Dates: start: 20140307, end: 20140307
  3. AERIUS [Suspect]
     Active Substance: DESLORATADINE
     Indication: INTENTIONAL SELF-INJURY
     Dosage: 10 DF, ONCE/SINGLE
     Route: 048
     Dates: start: 20140307, end: 20140307

REACTIONS (3)
  - Intentional self-injury [Recovering/Resolving]
  - Agitation [Recovering/Resolving]
  - Dyspepsia [Recovering/Resolving]

NARRATIVE: CASE EVENT DATE: 20140307
